FAERS Safety Report 21605154 (Version 2)
Quarter: 2022Q4

REPORT INFORMATION
  Report Type: Spontaneous
  Country: HU (occurrence: HU)
  Receive Date: 20221116
  Receipt Date: 20221117
  Transmission Date: 20230113
  Serious: Yes (Life-Threatening, Hospitalization)
  Sender: FDA-Public Use
  Company Number: HU-PFIZER INC-PV202200101475

PATIENT
  Age: 45 Year
  Sex: Female

DRUGS (3)
  1. SOLU-MEDROL [Suspect]
     Active Substance: METHYLPREDNISOLONE SODIUM SUCCINATE
     Dosage: 125 MG
  2. AUGMENTIN [Suspect]
     Active Substance: AMOXICILLIN\CLAVULANATE POTASSIUM
     Dosage: 1.2 G, 3X/DAY
     Route: 042
  3. METRONIDAZOLE\MICONAZOLE NITRATE [Suspect]
     Active Substance: METRONIDAZOLE\MICONAZOLE NITRATE
     Dosage: 100 MG, 2X/DAY
     Route: 042

REACTIONS (1)
  - No adverse event [Recovering/Resolving]
